FAERS Safety Report 7641556-5 (Version None)
Quarter: 2011Q3

REPORT INFORMATION
  Report Type: 
  Country: None (occurrence: None)
  Receive Date: 20110722
  Receipt Date: 20110711
  Transmission Date: 20111222
  Serious: Yes (Other)
  Sender: FDA-Public Use
  Company Number: IL-ACCORD-009963

PATIENT
  Age: 58 Year
  Sex: Male

DRUGS (1)
  1. SIMVASTATIN [Suspect]
     Indication: HYPERCHOLESTEROLAEMIA
     Dosage: 20.00-MG-1.0DAYS

REACTIONS (6)
  - SEDATION [None]
  - PAIN [None]
  - MERALGIA PARAESTHETICA [None]
  - URINARY TRACT DISORDER [None]
  - MYALGIA [None]
  - GAIT DISTURBANCE [None]
